FAERS Safety Report 6972875-3 (Version None)
Quarter: 2010Q3

REPORT INFORMATION
  Report Type: 
  Country: None (occurrence: None)
  Receive Date: 20100909
  Receipt Date: 20100518
  Transmission Date: 20110219
  Serious: No
  Sender: FDA-Public Use
  Company Number: US-KINGPHARMUSA00001-K201000617

PATIENT
  Sex: Male
  Weight: 92.971 kg

DRUGS (6)
  1. EMBEDA [Suspect]
     Indication: PAIN
     Dosage: 60 MG, BID
     Route: 048
     Dates: start: 20100503, end: 20100517
  2. PLAVIX [Concomitant]
  3. AMBIEN [Concomitant]
  4. COREG [Concomitant]
  5. ASPIRIN [Concomitant]
  6. OXYCODONE HCL [Concomitant]

REACTIONS (1)
  - HYPERTENSION [None]
